FAERS Safety Report 8917373 (Version 2)
Quarter: 2014Q2

REPORT INFORMATION
  Report Type: Spontaneous
  Country: US (occurrence: US)
  Receive Date: 20121120
  Receipt Date: 20140603
  Transmission Date: 20141212
  Serious: Yes (Hospitalization, Other)
  Sender: FDA-Public Use
  Company Number: US-ROCHE-1155529

PATIENT
  Age: 66 Year
  Sex: Female

DRUGS (1)
  1. KETOROLAC [Suspect]
     Indication: NECK PAIN
     Route: 030

REACTIONS (1)
  - Quadriplegia [Unknown]
